FAERS Safety Report 6370842-4 (Version None)
Quarter: 2009Q3

REPORT INFORMATION
  Report Type: 
  Country: None (occurrence: None)
  Receive Date: 20090923
  Receipt Date: 20070702
  Transmission Date: 20100115
  Serious: Yes (Other)
  Sender: FDA-Public Use
  Company Number: US-ASTRAZENECA-2006UW23889

PATIENT
  Age: 422 Month
  Sex: Male

DRUGS (10)
  1. SEROQUEL [Suspect]
     Indication: SLEEP DISORDER
     Route: 048
     Dates: start: 20020101
  2. SEROQUEL [Suspect]
     Route: 048
     Dates: start: 20070217
  3. SEROQUEL [Suspect]
     Route: 048
     Dates: start: 20060214
  4. SEROQUEL [Suspect]
     Dosage: 25 MG - 200 MG
     Route: 048
     Dates: start: 20041008
  5. ZYPREXA [Concomitant]
     Dates: start: 20030101, end: 20040101
  6. TYLENOL (CAPLET) [Concomitant]
     Route: 048
     Dates: start: 20041008
  7. LISINOPRIL [Concomitant]
     Route: 048
     Dates: start: 20051022
  8. ATROPINE SULFATE [Concomitant]
     Dosage: 1 MG / 10 ML
     Route: 042
     Dates: start: 20051020
  9. POTASSIUM CHLORIDE [Concomitant]
     Route: 048
     Dates: start: 20051020
  10. LIDOC HCL [Concomitant]
     Dosage: 100 MG / 5 ML
     Route: 042
     Dates: start: 20051020

REACTIONS (4)
  - DIABETES MELLITUS [None]
  - DIABETES MELLITUS INADEQUATE CONTROL [None]
  - DIABETIC KETOACIDOSIS [None]
  - TYPE 2 DIABETES MELLITUS [None]
